FAERS Safety Report 5369338-8 (Version None)
Quarter: 2007Q2

REPORT INFORMATION
  Report Type: 
  Country: None (occurrence: None)
  Receive Date: 20070625
  Receipt Date: 20070511
  Transmission Date: 20071010
  Serious: No
  Sender: FDA-Public Use
  Company Number: US-ASTRAZENECA-2007UW05976

PATIENT
  Age: 23475 Day
  Sex: Female
  Weight: 73.9 kg

DRUGS (3)
  1. CRESTOR [Suspect]
     Indication: HYPERLIPIDAEMIA
     Route: 048
     Dates: start: 20070307, end: 20070402
  2. ELAVIL [Concomitant]
     Dates: start: 20070220
  3. MEDRIN [Concomitant]
     Route: 048
     Dates: start: 20070220

REACTIONS (1)
  - HEADACHE [None]
